FAERS Safety Report 7591149-3 (Version None)
Quarter: 2011Q3

REPORT INFORMATION
  Report Type: 
  Country: None (occurrence: None)
  Receive Date: 20110705
  Receipt Date: 20110623
  Transmission Date: 20111222
  Serious: Yes (Other)
  Sender: FDA-Public Use
  Company Number: US-ASTRAZENECA-2011SE38260

PATIENT
  Sex: Male

DRUGS (15)
  1. NITROSTAT [Concomitant]
     Dosage: ONE TABLET UNDER THE TONGUE MAY REPEAT EVERY FIVE MINUTES. MAXIMUM OF THREE DOSES IN 15 MINUTES
     Route: 060
  2. DICLOFENAC SODIUM [Concomitant]
     Route: 048
  3. VERAPAMIL HCL [Concomitant]
     Route: 048
  4. SPIRONOLACTONE [Concomitant]
     Route: 048
  5. GABAPENTIN [Concomitant]
     Route: 048
  6. ASPIRIN [Concomitant]
     Route: 048
  7. VITAMIN D [Concomitant]
     Route: 048
  8. LISINOPRIL [Suspect]
     Route: 048
  9. SYNTHROID [Concomitant]
     Route: 048
  10. HUMIRA [Concomitant]
     Route: 058
  11. SIMVASTATIN [Concomitant]
  12. TOPROL-XL [Suspect]
     Route: 048
  13. TERAZOSIN HCL [Concomitant]
     Route: 048
  14. DYAZIDE [Concomitant]
     Dosage: 37.5MG/25MG DAILY
     Route: 048
  15. FLAXSEED OIL [Concomitant]

REACTIONS (18)
  - ARRHYTHMOGENIC RIGHT VENTRICULAR DYSPLASIA [None]
  - SPINAL LAMINECTOMY [None]
  - SLEEP APNOEA SYNDROME [None]
  - GASTROOESOPHAGEAL REFLUX DISEASE [None]
  - NEPHROLITHIASIS [None]
  - CONSTIPATION [None]
  - INTERVERTEBRAL DISC PROTRUSION [None]
  - ESSENTIAL HYPERTENSION [None]
  - OSTEOARTHRITIS [None]
  - IRRITABLE BOWEL SYNDROME [None]
  - OVERWEIGHT [None]
  - VENTRICULAR ARRHYTHMIA [None]
  - DERMAL CYST [None]
  - SUTURE REMOVAL [None]
  - POLYARTHRITIS [None]
  - CARDIAC PACEMAKER INSERTION [None]
  - BACK PAIN [None]
  - PAIN IN EXTREMITY [None]
